FAERS Safety Report 4978661-8 (Version None)
Quarter: 2006Q2

REPORT INFORMATION
  Report Type: 
  Country: None (occurrence: None)
  Receive Date: 20060420
  Receipt Date: 20060412
  Transmission Date: 20061013
  Serious: Yes (Other)
  Sender: FDA-Public Use
  Company Number: US-MERCK-0604USA02519

PATIENT
  Sex: Male

DRUGS (2)
  1. VIOXX [Suspect]
     Route: 065
  2. CELEBREX [Suspect]
     Route: 065

REACTIONS (9)
  - CARDIAC FAILURE [None]
  - CEREBROVASCULAR ACCIDENT [None]
  - CHEST PAIN [None]
  - HEPATOCELLULAR DAMAGE [None]
  - MYOCARDIAL INFARCTION [None]
  - RENAL INJURY [None]
  - SKIN INJURY [None]
  - THROMBOSIS [None]
  - ULCER [None]
